FAERS Safety Report 7202624-5 (Version None)
Quarter: 2010Q4

REPORT INFORMATION
  Report Type: 
  Country: None (occurrence: None)
  Receive Date: 20101216
  Receipt Date: 20101208
  Transmission Date: 20110411
  Serious: Yes (Hospitalization, Disabling, Other)
  Sender: FDA-Public Use
  Company Number: 2010SP008200

PATIENT
  Age: 34 Year
  Sex: Female
  Weight: 72.5755 kg

DRUGS (6)
  1. NUVARING [Suspect]
     Indication: CONTRACEPTION
     Dates: start: 20050925, end: 20060501
  2. NUVARING [Suspect]
     Indication: MENSTRUATION IRREGULAR
     Dates: start: 20050925, end: 20060501
  3. SINGULAIR [Concomitant]
  4. TOPAMAX [Concomitant]
  5. ADVAIR DISKUS 100/50 [Concomitant]
  6. EPIDURAL [Concomitant]

REACTIONS (50)
  - ACTIVITIES OF DAILY LIVING IMPAIRED [None]
  - ADENOMYOSIS [None]
  - ALCOHOL USE [None]
  - AMENORRHOEA [None]
  - APPETITE DISORDER [None]
  - ASTHENIA [None]
  - BREAST CANCER [None]
  - CATARACT OPERATION [None]
  - CHEST PAIN [None]
  - DEEP VEIN THROMBOSIS [None]
  - DEHYDRATION [None]
  - EXOSTOSIS [None]
  - FOOT FRACTURE [None]
  - GASTROINTESTINAL DISORDER [None]
  - HEPATIC ENZYME INCREASED [None]
  - HYPOAESTHESIA [None]
  - HYPOKALAEMIA [None]
  - IMPAIRED WORK ABILITY [None]
  - INSOMNIA [None]
  - INTERMITTENT CLAUDICATION [None]
  - MACULE [None]
  - MENORRHAGIA [None]
  - MENTAL DISORDER [None]
  - MIGRAINE [None]
  - MULTIPLE INJURIES [None]
  - NASOPHARYNGITIS [None]
  - NAUSEA [None]
  - NEUROPATHY PERIPHERAL [None]
  - OVARIAN CANCER [None]
  - OVARIAN CYST [None]
  - PAIN [None]
  - PELVIC ADHESIONS [None]
  - PELVIC PAIN [None]
  - PERIPHERAL VASCULAR DISORDER [None]
  - PRESYNCOPE [None]
  - RASH PRURITIC [None]
  - SOCIAL PROBLEM [None]
  - SOFT TISSUE DISORDER [None]
  - STRESS [None]
  - STRESS FRACTURE [None]
  - SYNCOPE [None]
  - TENDON PAIN [None]
  - THROMBOPHLEBITIS [None]
  - TINEA VERSICOLOUR [None]
  - UTERINE HAEMORRHAGE [None]
  - UTERINE LEIOMYOMA [None]
  - VASCULITIS [None]
  - VEIN DISORDER [None]
  - VIRAL INFECTION [None]
  - WEIGHT DECREASED [None]
